FAERS Safety Report 8233769-9 (Version None)
Quarter: 2012Q1

REPORT INFORMATION
  Report Type: 
  Country: None (occurrence: None)
  Receive Date: 20120326
  Receipt Date: 20120315
  Transmission Date: 20120608
  Serious: Yes (Hospitalization)
  Sender: FDA-Public Use
  Company Number: AU-JNJFOC-20111003737

PATIENT
  Sex: Male
  Weight: 54.5 kg

DRUGS (13)
  1. MIRTAZAPINE [Concomitant]
     Indication: ABDOMINAL PAIN UPPER
     Route: 065
     Dates: start: 20110913
  2. MULTI-VITAMINS [Concomitant]
     Indication: ALCOHOLISM
     Route: 065
     Dates: start: 20110801
  3. ZOLADEX [Concomitant]
     Indication: HORMONE THERAPY
     Route: 065
     Dates: start: 20070101
  4. OXYCODONE HCL [Concomitant]
     Indication: PAIN
     Route: 065
     Dates: start: 20110101
  5. ENOXAPARIN SODIUM [Concomitant]
     Indication: THROMBOSIS PROPHYLAXIS
     Route: 065
     Dates: start: 20100819
  6. ABIRATERONE ACETATE [Suspect]
     Indication: PROSTATE CANCER METASTATIC
     Route: 048
     Dates: start: 20110802, end: 20111005
  7. PREDNISOLONE [Suspect]
     Indication: PROSTATE CANCER METASTATIC
     Route: 048
     Dates: start: 20110802
  8. CALCIUM CARBONATE [Concomitant]
     Indication: VITAMIN D DEFICIENCY
     Route: 065
     Dates: start: 20110101
  9. ZOMETA [Concomitant]
     Indication: METASTASES TO BONE
     Route: 065
     Dates: start: 20100101
  10. PERINDOPRIL ERBUMINE [Concomitant]
     Indication: HYPERTENSION
     Route: 065
     Dates: start: 20100819
  11. THIAMINE HCL [Concomitant]
     Indication: ALCOHOLISM
     Route: 065
     Dates: start: 20110801
  12. ABIRATERONE ACETATE [Suspect]
     Route: 048
  13. ACETAMINOPHEN W/ CODEINE [Concomitant]
     Indication: METASTASES TO BONE
     Route: 065
     Dates: start: 20110101

REACTIONS (2)
  - CONFUSIONAL STATE [None]
  - ABDOMINAL PAIN UPPER [None]
